FAERS Safety Report 10407781 (Version 3)
Quarter: 2016Q1

REPORT INFORMATION
  Report Type: Spontaneous
  Country: US (occurrence: US)
  Receive Date: 20140825
  Receipt Date: 20160104
  Transmission Date: 20160525
  Serious: Yes (Hospitalization, Disabling, Other)
  Sender: FDA-Public Use
  Company Number: US-009507513-1408USA010521

PATIENT
  Sex: Female

DRUGS (2)
  1. FOSAMAX [Suspect]
     Active Substance: ALENDRONATE SODIUM
     Indication: OSTEOPOROSIS
     Dosage: 70MG,  UNKNOWN
     Route: 048
     Dates: start: 20000501, end: 20100430
  2. DORZOLAMIDE HYDROCHLORIDE. [Concomitant]
     Active Substance: DORZOLAMIDE HYDROCHLORIDE
     Indication: GLAUCOMA
     Dosage: UNK, UNKNOWN
     Route: 031
     Dates: start: 1992

REACTIONS (12)
  - Hip fracture [Unknown]
  - Fall [Unknown]
  - Gastrooesophageal reflux disease [Unknown]
  - Endodontic procedure [Unknown]
  - Foot fracture [Recovered/Resolved]
  - Fungal infection [Unknown]
  - Surgery [Unknown]
  - Appendicectomy [Unknown]
  - Anaemia [Unknown]
  - Ear tube insertion [Unknown]
  - Skin cancer [Unknown]
  - Hypertension [Unknown]

NARRATIVE: CASE EVENT DATE: 2002
